FAERS Safety Report 16819564 (Version 12)
Quarter: 2019Q4

REPORT INFORMATION
  Report Type: Report from Study
  Country: BR (occurrence: BR)
  Receive Date: 20190917
  Receipt Date: 20191203
  Transmission Date: 20200122
  Serious: Yes (Death, Hospitalization)
  Sender: FDA-Public Use
  Company Number: BR-EISAI MEDICAL RESEARCH-EC-2019-062235

PATIENT
  Age: 71 Year
  Sex: Female
  Weight: 60.5 kg

DRUGS (6)
  1. PEMBROLIZUMAB. [Suspect]
     Active Substance: PEMBROLIZUMAB
     Indication: ENDOMETRIAL CANCER
     Route: 041
     Dates: start: 20190904, end: 20190904
  2. LACTULOSE. [Concomitant]
     Active Substance: LACTULOSE
     Dates: start: 201906, end: 20190905
  3. DIPYRONE [Concomitant]
     Active Substance: DIPYRONE
     Dates: start: 201906, end: 20190822
  4. ONDANSETRON [Concomitant]
     Active Substance: ONDANSETRON
     Dates: start: 201906
  5. ENALAPRIL [Concomitant]
     Active Substance: ENALAPRIL
     Dates: start: 201803
  6. LENVATINIB [Suspect]
     Active Substance: LENVATINIB
     Indication: ENDOMETRIAL CANCER
     Route: 048
     Dates: start: 20190904, end: 20190910

REACTIONS (2)
  - Diarrhoea [Not Recovered/Not Resolved]
  - Malignant neoplasm progression [Fatal]

NARRATIVE: CASE EVENT DATE: 20190905
